FAERS Safety Report 7786254-2 (Version None)
Quarter: 2011Q3

REPORT INFORMATION
  Report Type: 
  Country: None (occurrence: None)
  Receive Date: 20110929
  Receipt Date: 20110923
  Transmission Date: 20111222
  Serious: No
  Sender: FDA-Public Use
  Company Number: US-BAYER-2011-090375

PATIENT
  Age: 47 Year
  Sex: Female

DRUGS (9)
  1. NAPROXEN (ALEVE) [Concomitant]
     Indication: PREMEDICATION
     Dosage: 2 TABLETS 1 HOUR BEFORE INJECTION
     Route: 048
  2. TRAMADOL HCL [Concomitant]
     Dosage: 50 MG
  3. FISH OIL [Concomitant]
     Dosage: 1 CAPSULE
     Route: 048
  4. BETASERON [Suspect]
     Indication: MULTIPLE SCLEROSIS
     Dosage: 0.25 MG, QOD
     Route: 058
  5. CITALOPRAM [Concomitant]
     Dosage: 10 MG
     Route: 048
  6. ZANAFLEX [Concomitant]
     Dosage: 4 MG
     Route: 048
  7. FLEXERIL [Concomitant]
     Dosage: 5 MG
     Route: 048
  8. ASCORBIC ACID [Concomitant]
     Dosage: 500 MG
     Route: 048
  9. VITAMIN B12 NOS [Concomitant]
     Dosage: 1000 CR

REACTIONS (1)
  - HYPERHIDROSIS [None]
